FAERS Safety Report 9219242 (Version 1)
Quarter: 2013Q1

REPORT INFORMATION
  Report Type: Spontaneous
  Country: US (occurrence: US)
  Receive Date: 20120830
  Receipt Date: 20120830
  Transmission Date: 20140127
  Serious: Yes (Hospitalization)
  Sender: FDA-Public Use
  Company Number: PHEH2011US08024

PATIENT
  Age: 54 Year
  Sex: Male
  Weight: 113.8 kg

DRUGS (4)
  1. SANDOSTATIN LAR DEPOT [Suspect]
     Indication: ACROMEGALY
     Route: 030
     Dates: start: 199205, end: 201102
  2. DIOVAN (VALSARTAN) [Concomitant]
  3. COUMADINE (WARFARIN SODIUM) [Concomitant]
  4. METFORMIN (METFORMIN) [Concomitant]

REACTIONS (2)
  - Pancreatitis acute [None]
  - Cholelithiasis [None]
